FAERS Safety Report 9601780 (Version 1)
Quarter: 2013Q4

REPORT INFORMATION
  Report Type: Spontaneous
  Country: US (occurrence: None)
  Receive Date: 20131004
  Receipt Date: 20131004
  Transmission Date: 20140711
  Serious: Yes (Life-Threatening, Disabling, Other)
  Sender: FDA-Public Use
  Company Number: None

PATIENT
  Sex: Male

DRUGS (8)
  1. PRADAXA [Suspect]
     Indication: ARRHYTHMIA
     Dosage: 2 PILLS DAILY, 2 DAILY, BY MOUTH
     Route: 048
  2. SYNTHROID [Concomitant]
  3. AMIODARONE HCL [Concomitant]
  4. DILTIAZEM [Concomitant]
  5. FERROUS SULFATE [Concomitant]
  6. OMEPRAZOLE [Concomitant]
  7. BABY ASPIRIN [Concomitant]
  8. VITAMIN D [Concomitant]

REACTIONS (4)
  - Contusion [None]
  - Loss of consciousness [None]
  - Asthenia [None]
  - Skin exfoliation [None]
